FAERS Safety Report 16760568 (Version 1)
Quarter: 2019Q3

REPORT INFORMATION
  Report Type: Spontaneous
  Country: US (occurrence: US)
  Receive Date: 20190830
  Receipt Date: 20190830
  Transmission Date: 20191005
  Serious: No
  Sender: FDA-Public Use
  Company Number: US-VERTEX PHARMACEUTICALS-2019-008163

PATIENT
  Sex: Female
  Weight: 61 kg

DRUGS (4)
  1. PULMOZYME [Concomitant]
     Active Substance: DORNASE ALFA
     Dosage: 1 MILLIGRAM
  2. KALYDECO [Suspect]
     Active Substance: IVACAFTOR
     Indication: CYSTIC FIBROSIS
     Dosage: 150MG IVACAFTOR, BID
     Route: 048
     Dates: start: 201902, end: 2019
  3. TOBRAMYCIN. [Concomitant]
     Active Substance: TOBRAMYCIN
     Dosage: 300 MILLIGRAM
  4. VITAMIN D3 [Concomitant]
     Active Substance: CHOLECALCIFEROL
     Dosage: UNK

REACTIONS (1)
  - Drug ineffective [Unknown]

NARRATIVE: CASE EVENT DATE: 2019
